FAERS Safety Report 15217484 (Version 1)
Quarter: 2018Q3

REPORT INFORMATION
  Report Type: Spontaneous
  Country: US (occurrence: US)
  Receive Date: 20180704
  Receipt Date: 20180704
  Transmission Date: 20181010
  Serious: Yes (Death)
  Sender: FDA-Public Use
  Company Number: None

PATIENT
  Age: 61 Year
  Sex: Female
  Weight: 58.7 kg

DRUGS (16)
  1. INSULIN HUMAN REGULAR [Concomitant]
     Active Substance: INSULIN HUMAN
  2. NOREPINEPHRINE. [Concomitant]
     Active Substance: NOREPINEPHRINE
  3. LEVOFLOXACIN. [Suspect]
     Active Substance: LEVOFLOXACIN
     Indication: PNEUMONIA
     Route: 042
     Dates: start: 20180301, end: 20180301
  4. OSELTAMIVIR [Concomitant]
     Active Substance: OSELTAMIVIR
  5. DOXYCYCLINE HYCLATE. [Concomitant]
     Active Substance: DOXYCYCLINE HYCLATE
  6. LEVOTHYROXINE. [Concomitant]
     Active Substance: LEVOTHYROXINE
  7. INSULIN HUMAN LISPRO [Concomitant]
  8. LEVETIRACETAM. [Concomitant]
     Active Substance: LEVETIRACETAM
  9. PANTOPRAZOLE [Concomitant]
     Active Substance: PANTOPRAZOLE
  10. ZOSYN [Concomitant]
     Active Substance: PIPERACILLIN SODIUM\TAZOBACTAM SODIUM
  11. LORAZEPAM. [Concomitant]
     Active Substance: LORAZEPAM
  12. MIDAZOLAM [Concomitant]
     Active Substance: MIDAZOLAM HYDROCHLORIDE
  13. VANCOMYCIN [Concomitant]
     Active Substance: VANCOMYCIN
  14. MORPHINE [Concomitant]
     Active Substance: MORPHINE
  15. PHENYTOIN. [Concomitant]
     Active Substance: PHENYTOIN
  16. TAMSULOSIN [Concomitant]
     Active Substance: TAMSULOSIN

REACTIONS (1)
  - Status epilepticus [None]

NARRATIVE: CASE EVENT DATE: 20180302
